FAERS Safety Report 24541356 (Version 2)
Quarter: 2024Q4

REPORT INFORMATION
  Report Type: Report from Study
  Country: FI (occurrence: FI)
  Receive Date: 20241023
  Receipt Date: 20241107
  Transmission Date: 20250115
  Serious: Yes (Hospitalization, Other)
  Sender: ABBVIE
  Company Number: FI-ABBVIE-5948718

PATIENT
  Age: 69 Year
  Sex: Female
  Weight: 63 kg

DRUGS (11)
  1. FOSCARBIDOPA\FOSLEVODOPA [Suspect]
     Active Substance: FOSCARBIDOPA\FOSLEVODOPA
     Indication: Parkinson^s disease
     Dosage: BASE: 0.35 ML/H, HIGH: 0.39 ML/H, 0.10 ML
     Route: 058
     Dates: start: 20240903
  2. pramipexole (Sifrol) [Concomitant]
     Indication: Parkinson^s disease
  3. PRAMIPEXOLE DIHYDROCHLORIDE [Concomitant]
     Active Substance: PRAMIPEXOLE DIHYDROCHLORIDE
     Indication: Parkinson^s disease
     Dosage: STRENGTH : 0.52 MILLIGRAM
  4. ASPIRIN [Concomitant]
     Active Substance: ASPIRIN
     Indication: Anticoagulant therapy
     Dosage: 50 MG PER DAY IN THE MORNING. STRENGTH : 50 MILLIGRAM
  5. PANTOPRAZOLE SODIUM [Concomitant]
     Active Substance: PANTOPRAZOLE SODIUM
     Indication: Product used for unknown indication
  6. NORSPAN [Concomitant]
     Active Substance: BUPRENORPHINE
     Indication: Product used for unknown indication
     Dosage: STRENGTH: 10 MICROGRAM
  7. SOLIFENACIN [Concomitant]
     Active Substance: SOLIFENACIN
     Indication: Urinary incontinence
     Dosage: STRENGTH -5 MILLIGRAM
  8. MELATONIN [Concomitant]
     Active Substance: MELATONIN
     Indication: Product used for unknown indication
     Dosage: 3 MG IN THE EVENING
  9. RASABON [Concomitant]
     Indication: Parkinson^s disease
     Dosage: STRENGTH :1 MILLIGRAM
  10. CHOLECALCIFEROL [Concomitant]
     Active Substance: CHOLECALCIFEROL
     Indication: Product used for unknown indication
     Dosage: STRENGTH : 50 MICROGRAM
  11. VITAMIN D [Concomitant]
     Active Substance: VITAMIN D NOS
     Indication: Product used for unknown indication
     Dosage: START DATE TEXT: ABOUT 15 YEARS AGO

REACTIONS (12)
  - Localised infection [Recovering/Resolving]
  - Injection site infection [Recovering/Resolving]
  - Device issue [Recovered/Resolved]
  - Erythema [Recovering/Resolving]
  - Pain of skin [Recovering/Resolving]
  - Pyrexia [Recovered/Resolved]
  - Erysipelas [Recovering/Resolving]
  - Injection site warmth [Recovering/Resolving]
  - Injection site erythema [Recovering/Resolving]
  - Inflammation [Unknown]
  - Catheter site infection [Recovering/Resolving]
  - Mobility decreased [Unknown]

NARRATIVE: CASE EVENT DATE: 20240101
